FAERS Safety Report 8289903-8 (Version None)
Quarter: 2012Q2

REPORT INFORMATION
  Report Type: 
  Country: None (occurrence: None)
  Receive Date: 20120417
  Receipt Date: 20120409
  Transmission Date: 20120825
  Serious: Yes (Death, Other)
  Sender: FDA-Public Use
  Company Number: US-CELGENEUS-163-21880-12041050

PATIENT

DRUGS (3)
  1. VIDAZA [Suspect]
     Dosage: 75 MILLIGRAM/SQ. METER
     Route: 065
  2. REVLIMID [Suspect]
     Dosage: 10 MILLIGRAM
     Route: 048
  3. REVLIMID [Suspect]

REACTIONS (33)
  - CEREBRAL HAEMORRHAGE [None]
  - MYELODYSPLASTIC SYNDROME TRANSFORMATION [None]
  - HYPONATRAEMIA [None]
  - THROMBOCYTOPENIA [None]
  - FUNGAEMIA [None]
  - ACUTE MYELOID LEUKAEMIA [None]
  - ACUTE MYOCARDIAL INFARCTION [None]
  - DEHYDRATION [None]
  - RESPIRATORY FAILURE [None]
  - THROMBOSIS [None]
  - PULMONARY EMBOLISM [None]
  - HYPOMAGNESAEMIA [None]
  - FEBRILE NEUTROPENIA [None]
  - SUBCLAVIAN VEIN THROMBOSIS [None]
  - DEEP VEIN THROMBOSIS [None]
  - CONSTIPATION [None]
  - FATIGUE [None]
  - BACTERAEMIA [None]
  - CARDIAC DISORDER [None]
  - DEATH [None]
  - ANAEMIA [None]
  - CARDIAC ARREST [None]
  - INFECTION [None]
  - LUNG DISORDER [None]
  - RASH [None]
  - DIZZINESS [None]
  - DEVICE RELATED INFECTION [None]
  - HYPOXIC-ISCHAEMIC ENCEPHALOPATHY [None]
  - NEOPLASM PROGRESSION [None]
  - INJECTION SITE REACTION [None]
  - DIARRHOEA [None]
  - NAUSEA [None]
  - DYSPNOEA [None]
